FAERS Safety Report 9263533 (Version 1)
Quarter: 2013Q2

REPORT INFORMATION
  Report Type: Spontaneous
  Country: US (occurrence: US)
  Receive Date: 20130430
  Receipt Date: 20130430
  Transmission Date: 20140414
  Serious: No
  Sender: FDA-Public Use
  Company Number: US-PFIZER INC-2013132476

PATIENT
  Age: 63 Year
  Sex: Female
  Weight: 113 kg

DRUGS (5)
  1. FLECTOR [Suspect]
     Indication: PAIN
     Dosage: 1 PATCH EVERY TWELVE HOURS
     Dates: start: 20130412, end: 20130423
  2. MECLOZINE HCL [Suspect]
     Dosage: 25 MG, 3X/DAY
  3. PROMETHAZINE HCL [Suspect]
     Indication: NAUSEA
     Dosage: 25 MG, AS NEEDED
  4. PROMETHAZINE HCL [Suspect]
     Indication: VOMITING
  5. XANAX [Concomitant]
     Indication: RELAXATION THERAPY
     Dosage: 2 MG, DAILY

REACTIONS (4)
  - Abdominal pain upper [Unknown]
  - Nausea [Unknown]
  - Dizziness [Unknown]
  - Constipation [Unknown]
